FAERS Safety Report 14554916 (Version 1)
Quarter: 2018Q1

REPORT INFORMATION
  Report Type: Spontaneous
  Country: IT (occurrence: IT)
  Receive Date: 20180220
  Receipt Date: 20180220
  Transmission Date: 20180509
  Serious: Yes (Hospitalization)
  Sender: FDA-Public Use
  Company Number: IT-NOVOPROD-585579

PATIENT
  Age: 72 Year
  Sex: Female

DRUGS (1)
  1. INSULIN ASPART [Suspect]
     Active Substance: INSULIN ASPART
     Indication: DIABETES MELLITUS
     Dosage: 18 IU, QD
     Route: 058

REACTIONS (4)
  - Sopor [Unknown]
  - Aphasia [Unknown]
  - Hypoglycaemia [Unknown]
  - Disorientation [Unknown]

NARRATIVE: CASE EVENT DATE: 20161122
